FAERS Safety Report 8712061 (Version 3)
Quarter: 2012Q4

REPORT INFORMATION
  Report Type: 
  Country: US (occurrence: US)
  Receive Date: 20120807
  Receipt Date: 20121219
  Transmission Date: 20130627
  Serious: Yes (Other)
  Sender: FDA-Public Use
  Company Number: US-PFIZER INC-2012187184

PATIENT
  Age: 60 Year
  Sex: Female

DRUGS (13)
  1. NEURONTIN [Suspect]
     Indication: PERIPHERAL NEUROPATHY NOS
     Dosage: 600 mg (1 tab), 3x/day (TID)
  2. LIPITOR [Suspect]
     Dosage: UNK
  3. ALBUTEROL [Concomitant]
     Dosage: UNK
  4. LASIX [Concomitant]
     Dosage: UNK
  5. LISINOPRIL [Concomitant]
     Dosage: UNK
  6. LORAZEPAM [Concomitant]
     Dosage: 0.5 mg, UNK
     Route: 048
  7. LORTAB [Concomitant]
     Dosage: 10/325 PRN
  8. MULTIVITAMINS [Concomitant]
     Dosage: UNK
  9. TRAZODONE HYDROCHLORIDE [Concomitant]
     Dosage: 50 mg, QHS
  10. ULTRAM [Concomitant]
     Indication: PAIN
     Dosage: 50 mg, as needed (1-2 Tablets orally every 8 hours as needed for Pain)
     Route: 048
  11. VITAMIN B6 [Concomitant]
     Dosage: UNK
  12. VITAMIN B12 [Concomitant]
     Dosage: UNK
  13. VITAMIN D [Concomitant]
     Dosage: UNK

REACTIONS (18)
  - Neuropathy peripheral [Unknown]
  - Peripheral vascular disorder [Unknown]
  - Knee deformity [Recovered/Resolved]
  - Intervertebral disc degeneration [Unknown]
  - Radiculopathy [Unknown]
  - Nerve injury [Unknown]
  - Urinary incontinence [Unknown]
  - Drug hypersensitivity [Unknown]
  - Hypoaesthesia [Unknown]
  - Paraesthesia [Unknown]
  - Muscular weakness [Unknown]
  - Weight increased [Unknown]
  - Back pain [Unknown]
  - Pain [Unknown]
  - Pain in extremity [Unknown]
  - Gait disturbance [Unknown]
  - Skin discolouration [Unknown]
  - Obesity [Unknown]
